FAERS Safety Report 18877352 (Version 1)
Quarter: 2021Q1

REPORT INFORMATION
  Report Type: Other
  Country: ES (occurrence: ES)
  Receive Date: 20210211
  Receipt Date: 20210211
  Transmission Date: 20210420
  Serious: Yes (Death, Other)
  Sender: FDA-Public Use
  Company Number: ES-ROCHE-2763403

PATIENT

DRUGS (2)
  1. TOCILIZUMAB. [Suspect]
     Active Substance: TOCILIZUMAB
     Indication: COVID-19
     Dosage: WEIGHT BASED OF 8 MG/KG TO A MAXIMUM OF 800 MG PER DOSE AND UP TO A MAXIMUM OF 3 DOSES SEPARATED 12?
     Route: 042
  2. SODIUM CHLORIDE. [Concomitant]
     Active Substance: SODIUM CHLORIDE
     Route: 042

REACTIONS (13)
  - Pneumonia [Unknown]
  - Intentional product use issue [Unknown]
  - Device related bacteraemia [Unknown]
  - Soft tissue infection [Unknown]
  - Device related sepsis [Unknown]
  - Clostridium difficile infection [Unknown]
  - Nosocomial infection [Fatal]
  - Urinary tract infection [Unknown]
  - Gastrointestinal infection [Unknown]
  - Bacteraemia [Unknown]
  - Skin infection [Unknown]
  - Cytomegalovirus infection reactivation [Unknown]
  - Off label use [Unknown]
